FAERS Safety Report 21995945 (Version 1)
Quarter: 2023Q1

REPORT INFORMATION
  Report Type: Spontaneous
  Country: US (occurrence: US)
  Receive Date: 20230215
  Receipt Date: 20230215
  Transmission Date: 20230418
  Serious: No
  Sender: FDA-Public Use
  Company Number: US-INCYTE CORPORATION-2023IN001433

PATIENT

DRUGS (2)
  1. JAKAFI [Suspect]
     Active Substance: RUXOLITINIB
     Indication: Myeloid leukaemia
     Dosage: 5 MILLIGRAM, BID
     Route: 048
     Dates: start: 202210
  2. JAKAFI [Suspect]
     Active Substance: RUXOLITINIB
     Indication: Stem cell transplant

REACTIONS (3)
  - Decreased activity [Not Recovered/Not Resolved]
  - Diarrhoea [Not Recovered/Not Resolved]
  - Off label use [Unknown]

NARRATIVE: CASE EVENT DATE: 20221001
